FAERS Safety Report 24793032 (Version 1)
Quarter: 2024Q4

REPORT INFORMATION
  Report Type: Spontaneous
  Country: CA (occurrence: CA)
  Receive Date: 20241231
  Receipt Date: 20241231
  Transmission Date: 20250115
  Serious: Yes (Life-Threatening, Hospitalization, Other)
  Sender: TEVA
  Company Number: CA-TEVA-VS-3281659

PATIENT
  Age: 12 Year
  Sex: Female

DRUGS (2)
  1. ETOPOSIDE [Suspect]
     Active Substance: ETOPOSIDE
     Indication: Osteosarcoma
     Dosage: DOSE FORM: LIQUID INTRAVENOUS
     Route: 042
  2. IFEX [Suspect]
     Active Substance: IFOSFAMIDE
     Indication: Osteosarcoma
     Dosage: DOSE FORM: POWDER FOR SOLUTION INTRAVENOUS
     Route: 042

REACTIONS (5)
  - Nausea [Recovered/Resolved]
  - Bacteraemia [Recovered/Resolved]
  - Escherichia test positive [Recovered/Resolved]
  - Headache [Recovered/Resolved]
  - Febrile neutropenia [Recovered/Resolved]
